FAERS Safety Report 15049504 (Version 1)
Quarter: 2018Q2

REPORT INFORMATION
  Report Type: Spontaneous
  Country: US (occurrence: US)
  Receive Date: 20180622
  Receipt Date: 20180622
  Transmission Date: 20180711
  Serious: No
  Sender: FDA-Public Use
  Company Number: US-BAYER-2018-117414

PATIENT
  Age: 24 Year
  Sex: Female

DRUGS (2)
  1. ALEVE [Suspect]
     Active Substance: NAPROXEN SODIUM
     Indication: OROPHARYNGEAL PAIN
     Dosage: 4 DF, UNK
     Route: 048
     Dates: start: 20180620, end: 20180620
  2. ALEVE [Suspect]
     Active Substance: NAPROXEN SODIUM
     Indication: OROPHARYNGEAL PAIN
     Dosage: 2 DF, UNK (2 CAPLETS THEN 1 IN 12 HOURS 3 IN 24 HOURS)
     Route: 048
     Dates: start: 20180620, end: 20180620

REACTIONS (2)
  - Product use in unapproved indication [Unknown]
  - Incorrect dosage administered [Unknown]

NARRATIVE: CASE EVENT DATE: 20180620
